FAERS Safety Report 22278574 (Version 1)
Quarter: 2023Q2

REPORT INFORMATION
  Report Type: Spontaneous
  Country: US (occurrence: US)
  Receive Date: 20230503
  Receipt Date: 20230503
  Transmission Date: 20230721
  Serious: No
  Sender: FDA-Public Use
  Company Number: US-PFIZER INC-202300099590

PATIENT
  Age: 68 Year
  Sex: Female
  Weight: 66 kg

DRUGS (2)
  1. NIVESTYM [Suspect]
     Active Substance: FILGRASTIM-AAFI
     Indication: Neutropenia
     Dosage: 480 UG
     Route: 058
  2. COMPAZINE [Concomitant]
     Active Substance: PROCHLORPERAZINE MALEATE
     Indication: Nausea
     Dosage: UNK

REACTIONS (1)
  - Needle issue [Unknown]
